FAERS Safety Report 18339231 (Version 2)
Quarter: 2020Q4

REPORT INFORMATION
  Report Type: Spontaneous
  Country: US (occurrence: US)
  Receive Date: 20201002
  Receipt Date: 20201015
  Transmission Date: 20210113
  Serious: No
  Sender: FDA-Public Use
  Company Number: US-PFIZER INC-2020378064

PATIENT
  Age: 68 Year
  Sex: Male

DRUGS (7)
  1. LOSARTAN. [Suspect]
     Active Substance: LOSARTAN
     Dosage: UNK
  2. LISINOPRIL. [Suspect]
     Active Substance: LISINOPRIL
     Dosage: UNK
  3. PAPAVERINE [Suspect]
     Active Substance: PAPAVERINE
     Dosage: UNK
  4. EFFEXOR XR [Suspect]
     Active Substance: VENLAFAXINE HYDROCHLORIDE
     Dosage: UNK
  5. KETOCONAZOLE. [Suspect]
     Active Substance: KETOCONAZOLE
     Dosage: UNK
  6. TETRACYCLINE HCL [Suspect]
     Active Substance: TETRACYCLINE HYDROCHLORIDE
     Dosage: UNK
  7. AVAPRO [Suspect]
     Active Substance: IRBESARTAN
     Dosage: UNK

REACTIONS (1)
  - Drug hypersensitivity [Unknown]
